FAERS Safety Report 5418377-7 (Version None)
Quarter: 2007Q3

REPORT INFORMATION
  Report Type: 
  Country: None (occurrence: None)
  Receive Date: 20070817
  Receipt Date: 20070810
  Transmission Date: 20080115
  Serious: Yes (Other)
  Sender: FDA-Public Use
  Company Number: JP-SANOFI-SYNTHELABO-A01200708843

PATIENT
  Age: 89 Year
  Sex: Male
  Weight: 48 kg

DRUGS (10)
  1. NITRODERM [Suspect]
     Indication: ANGINA PECTORIS
     Route: 061
     Dates: start: 20070629
  2. PURSENNID [Suspect]
     Indication: CONSTIPATION
     Route: 048
     Dates: start: 20070629
  3. FOLIAMIN [Suspect]
     Indication: RENAL FAILURE
     Route: 048
     Dates: start: 20070629
  4. CALTAN [Suspect]
     Indication: RENAL FAILURE
     Route: 048
     Dates: start: 20070629
  5. CELTECT [Suspect]
     Indication: PRURITUS
     Route: 048
     Dates: start: 20070629
  6. MUCODYNE [Suspect]
     Indication: PLEURISY
     Route: 048
     Dates: start: 20070629
  7. CLARITHROMYCIN [Suspect]
     Indication: PLEURISY
     Route: 048
     Dates: start: 20070629
  8. FAMOTIDINE [Suspect]
     Indication: GASTRITIS
     Route: 048
     Dates: start: 20070629
  9. ZOLPIDEM [Suspect]
     Indication: INSOMNIA
     Route: 048
     Dates: start: 20070701, end: 20070701
  10. ZOLPIDEM [Suspect]
     Route: 048
     Dates: start: 20070702, end: 20070711

REACTIONS (1)
  - DELIRIUM [None]
